FAERS Safety Report 8564561 (Version 2)
Quarter: 2013Q2

REPORT INFORMATION
  Report Type: Spontaneous
  Country: US (occurrence: US)
  Receive Date: 20120516
  Receipt Date: 20130502
  Transmission Date: 20140414
  Serious: Yes (Hospitalization)
  Sender: FDA-Public Use
  Company Number: US-ALEXION-A201101889

PATIENT
  Sex: Female

DRUGS (2)
  1. SOLIRIS 300MG [Suspect]
     Indication: PAROXYSMAL NOCTURNAL HAEMOGLOBINURIA
     Dosage: UNK
     Route: 042
  2. ANTIBIOTICS [Suspect]
     Indication: PNEUMONIA FUNGAL

REACTIONS (8)
  - Unevaluable event [Unknown]
  - Cholelithiasis [Unknown]
  - Chest pain [Unknown]
  - Vomiting [Unknown]
  - Splenomegaly [Unknown]
  - Hepatomegaly [Unknown]
  - Hepatic enzyme increased [Unknown]
  - Blood iron increased [Unknown]
